FAERS Safety Report 13036241 (Version 1)
Quarter: 2016Q4

REPORT INFORMATION
  Report Type: Spontaneous
  Country: US (occurrence: US)
  Receive Date: 20161216
  Receipt Date: 20161216
  Transmission Date: 20170207
  Serious: No
  Sender: FDA-Public Use
  Company Number: US-G+W LABS-GW2016US000218

PATIENT

DRUGS (2)
  1. CICLOPIROX. [Suspect]
     Active Substance: CICLOPIROX
     Indication: PRODUCT USED FOR UNKNOWN INDICATION
     Dosage: 8 %, UNK
     Route: 061
  2. CICLOPIROX. [Suspect]
     Active Substance: CICLOPIROX
     Dosage: 8 %, UNK

REACTIONS (1)
  - Drug ineffective [Not Recovered/Not Resolved]
